FAERS Safety Report 6438073-7 (Version None)
Quarter: 2009Q4

REPORT INFORMATION
  Report Type: 
  Country: None (occurrence: None)
  Receive Date: 20091112
  Receipt Date: 20091105
  Transmission Date: 20100525
  Serious: Yes (Hospitalization)
  Sender: FDA-Public Use
  Company Number: HU-ELI_LILLY_AND_COMPANY-HU200910002737

PATIENT
  Age: 75 Year
  Sex: Female

DRUGS (5)
  1. HUMALOG [Suspect]
     Indication: DIABETES MELLITUS
     Dosage: 14 IU, 3/D
     Route: 058
     Dates: start: 20030101
  2. XANAX [Concomitant]
     Dosage: 3 ML, DAILY (1/D)
     Route: 065
  3. XANAX [Concomitant]
     Dosage: 5 ML, DAILY (1/D)
     Route: 065
  4. ANDAXIN [Concomitant]
     Dosage: UNK UNK, 3/D
     Route: 048
  5. LANTUS [Concomitant]
     Dosage: 28 IU, EACH EVENING
     Route: 058

REACTIONS (2)
  - BLOOD GLUCOSE INCREASED [None]
  - CONFUSIONAL STATE [None]
